FAERS Safety Report 8769648 (Version 1)
Quarter: 2012Q4

REPORT INFORMATION
  Report Type: 
  Country: ZA (occurrence: ZA)
  Receive Date: 20120905
  Receipt Date: 20120905
  Transmission Date: 20130627
  Serious: Yes (Death, Hospitalization, Other)
  Sender: FDA-Public Use
  Company Number: ZA-BAYER-2012-089236

PATIENT
  Age: 33 Year
  Sex: Female

DRUGS (17)
  1. TRIMETHOPRIM-SULFAMETHOXAZOLE [Suspect]
     Indication: ISOSPORIASIS
     Dosage: treatment
  2. TRIMETHOPRIM-SULFAMETHOXAZOLE [Suspect]
     Indication: PROPHYLAXIS
     Dosage: 960 mg, UNK
  3. TRIMETHOPRIM-SULFAMETHOXAZOLE [Suspect]
     Indication: DIARRHOEA
     Dosage: 1920 mg, UNK
  4. CIPROFLOXACIN [Suspect]
     Indication: PROPHYLAXIS
     Dosage: 500 mg, UNK
  5. CIPROFLOXACIN [Suspect]
     Indication: ISOSPORIASIS
  6. CIPROFLOXACIN [Suspect]
     Indication: DIARRHOEA
  7. PAROMOMYCIN [Concomitant]
     Indication: ISOSPORIASIS
  8. PYRIMETHAMINE [Concomitant]
     Indication: ISOSPORIASIS
  9. NITAZOXANIDE [Concomitant]
     Indication: ISOSPORIASIS
  10. STAVUDINE [Concomitant]
     Indication: PROPHYLAXIS
  11. STAVUDINE [Concomitant]
     Indication: ANTIRETROVIRAL THERAPY
  12. LAMIVUDINE [Concomitant]
     Indication: PROPHYLAXIS
  13. LAMIVUDINE [Concomitant]
     Indication: ANTIRETROVIRAL THERAPY
  14. NEVIRAPINE [Concomitant]
     Indication: PROPHYLAXIS
  15. NEVIRAPINE [Concomitant]
     Indication: ANTIRETROVIRAL THERAPY
  16. EFAVIRENZ [Concomitant]
     Indication: ANTIRETROVIRAL THERAPY
  17. ZIDOVUDINE [Concomitant]
     Indication: ANTIRETROVIRAL THERAPY

REACTIONS (10)
  - Isosporiasis [Fatal]
  - Diarrhoea [Fatal]
  - Deep vein thrombosis [None]
  - Depression [None]
  - Tetany [None]
  - Drug resistance [None]
  - Major depression [None]
  - Tetany [None]
  - General physical health deterioration [None]
  - Weight decreased [None]
